FAERS Safety Report 7801448-5 (Version None)
Quarter: 2011Q4

REPORT INFORMATION
  Report Type: 
  Country: None (occurrence: None)
  Receive Date: 20111006
  Receipt Date: 20111006
  Transmission Date: 20120403
  Serious: Yes (Hospitalization)
  Sender: FDA-Public Use
  Company Number: None

PATIENT
  Age: 88 Year
  Sex: Male
  Weight: 64.5 kg

DRUGS (12)
  1. LASIX [Concomitant]
  2. ZOCOR [Concomitant]
  3. ASPIRIN [Suspect]
     Indication: CORONARY ARTERY DISEASE
     Dosage: 81 MG DAILY PO CHRONIC
     Route: 048
  4. ALBUTEROL [Concomitant]
  5. LEVOTHYROXINE SODIUM [Concomitant]
  6. ATROVENT [Concomitant]
  7. COUMADIN [Suspect]
     Dosage: 4 MG DAILY PO CHRONIC
     Route: 048
  8. TOPROL-XL [Concomitant]
  9. KEPPRA [Concomitant]
  10. DEXAMETHASONE [Concomitant]
  11. NEXIUM [Concomitant]
  12. PLAVIX [Suspect]
     Indication: CORONARY ARTERY DISEASE
     Dosage: 75 MG DAILY PO CHRONIC
     Route: 048

REACTIONS (3)
  - GASTROINTESTINAL HAEMORRHAGE [None]
  - INTERNATIONAL NORMALISED RATIO INCREASED [None]
  - IRON DEFICIENCY ANAEMIA [None]
